FAERS Safety Report 5366447-4 (Version None)
Quarter: 2007Q2

REPORT INFORMATION
  Report Type: 
  Country: None (occurrence: None)
  Receive Date: 20070622
  Receipt Date: 20070612
  Transmission Date: 20071010
  Serious: Yes (Hospitalization)
  Sender: FDA-Public Use
  Company Number: US-JNJFOC-20070604447

PATIENT
  Sex: Female
  Weight: 92.99 kg

DRUGS (2)
  1. DURAGESIC-100 [Suspect]
     Indication: PAIN
     Route: 062
  2. VICODIN [Concomitant]
     Indication: BREAKTHROUGH PAIN
     Route: 048

REACTIONS (5)
  - ANXIETY [None]
  - APPLICATION SITE IRRITATION [None]
  - BACK PAIN [None]
  - FORMICATION [None]
  - WRONG TECHNIQUE IN DRUG USAGE PROCESS [None]
